FAERS Safety Report 8313251-0 (Version None)
Quarter: 2012Q2

REPORT INFORMATION
  Report Type: 
  Country: None (occurrence: None)
  Receive Date: 20120426
  Receipt Date: 20120419
  Transmission Date: 20120825
  Serious: Yes (Hospitalization, Other)
  Sender: FDA-Public Use
  Company Number: EE-PFIZER INC-2012099344

PATIENT
  Age: 64 Year
  Sex: Male
  Weight: 60 kg

DRUGS (19)
  1. ITRACONAZOLE [Concomitant]
  2. DIGOXIN [Concomitant]
  3. SODIUM CHLORIDE [Concomitant]
  4. PREDNISOLONE [Concomitant]
  5. GLUCOSE [Concomitant]
  6. VFEND [Suspect]
     Indication: ASPERGILLOSIS
     Dosage: 200 MG, 2X/DAY
     Route: 042
     Dates: start: 20120411, end: 20120415
  7. ACETYLCYSTEINE [Concomitant]
  8. POTASSIUM CHLORIDE [Concomitant]
  9. VANCOMYCIN [Concomitant]
  10. AMINOPHYLLINE [Concomitant]
  11. SPIRONOLACTONE [Concomitant]
  12. IMDUR [Concomitant]
  13. DEXON [Concomitant]
  14. CALCIGRAN [Concomitant]
  15. AMBISOME [Concomitant]
  16. CLARITHROMYCIN [Concomitant]
  17. RETAFYLLIN [Concomitant]
  18. IMIPENEM AND CILASTATIN SODIUM [Concomitant]
  19. OMEPRAZOLE [Concomitant]

REACTIONS (2)
  - DISORIENTATION [None]
  - LIVER INJURY [None]
